FAERS Safety Report 9423512 (Version 1)
Quarter: 2013Q3

REPORT INFORMATION
  Report Type: Spontaneous
  Country: US (occurrence: US)
  Receive Date: 20130726
  Receipt Date: 20130726
  Transmission Date: 20140515
  Serious: Yes (Other)
  Sender: FDA-Public Use
  Company Number: US-UCBSA-087843

PATIENT
  Age: 67 Year
  Sex: Female

DRUGS (10)
  1. NEUPRO [Suspect]
     Indication: PARKINSON^S DISEASE
     Dosage: 2/MG PATCH
     Dates: start: 201301, end: 2013
  2. NEUPRO [Suspect]
     Indication: PARKINSON^S DISEASE
     Dates: start: 201303
  3. LEVOTHYROXIN [Concomitant]
     Dosage: DAILY DOSE - 25 MCG DAILY
  4. COZAAR [Concomitant]
     Dosage: 120 GENERIC ONCE A DAY
  5. PLAVIX [Concomitant]
     Dosage: DAILY DOSE - 125 MG ONCE DAILY
  6. NORVASE [Concomitant]
     Dosage: DOSE - 2.5 GENERIC DAILY
  7. PROVADSTATIN [Concomitant]
     Dosage: DAILY DOSE - 40 MG DAILY
  8. REQUIP GENERIC [Concomitant]
  9. AZILECT [Concomitant]
     Dosage: DAILY DOSE - 1MG
  10. LANSOPRAZOLE [Concomitant]
     Dosage: DAILY DOSE - 30 MG

REACTIONS (4)
  - Labile blood pressure [Not Recovered/Not Resolved]
  - Foot fracture [Not Recovered/Not Resolved]
  - Asthenia [Unknown]
  - Paraesthesia [Unknown]
